FAERS Safety Report 8955007 (Version 5)
Quarter: 2013Q4

REPORT INFORMATION
  Report Type: Spontaneous
  Country: BR (occurrence: None)
  Receive Date: 20121129
  Receipt Date: 20131211
  Transmission Date: 20140711
  Serious: Yes (Other)
  Sender: FDA-Public Use
  Company Number: VAL_01008_2012

PATIENT
  Age: 27 Year
  Sex: Female

DRUGS (1)
  1. METHERGINE [Suspect]
     Indication: HAEMORRHAGE
     Dosage: 1X6 HOURS
     Dates: start: 20121120

REACTIONS (2)
  - Product quality issue [None]
  - Drug effect decreased [None]
